FAERS Safety Report 5474226-2 (Version None)
Quarter: 2007Q4

REPORT INFORMATION
  Report Type: 
  Country: None (occurrence: None)
  Receive Date: 20071002
  Receipt Date: 20070612
  Transmission Date: 20080405
  Serious: No
  Sender: FDA-Public Use
  Company Number: US-ASTRAZENECA-2007UW13076

PATIENT
  Age: 86 Year
  Sex: Female
  Weight: 53.5 kg

DRUGS (9)
  1. ARIMIDEX [Suspect]
     Indication: BREAST CANCER
     Route: 048
     Dates: start: 20070513, end: 20070531
  2. CONCERTA [Concomitant]
  3. ZOLOFT [Concomitant]
     Dosage: 1/2 TABLET DAILY
  4. ALLEGRA [Concomitant]
  5. TOPROL-XL [Concomitant]
  6. LASIX [Concomitant]
  7. REGLAN [Concomitant]
  8. LOVASTATIN [Concomitant]
  9. NASONEX [Concomitant]

REACTIONS (7)
  - COUGH [None]
  - DEPRESSION [None]
  - DIARRHOEA [None]
  - DRY MOUTH [None]
  - FATIGUE [None]
  - MALAISE [None]
  - MOOD ALTERED [None]
